FAERS Safety Report 7268685-2 (Version None)
Quarter: 2011Q1

REPORT INFORMATION
  Report Type: 
  Country: None (occurrence: None)
  Receive Date: 20110121
  Receipt Date: 20110114
  Transmission Date: 20110831
  Serious: Yes (Other)
  Sender: FDA-Public Use
  Company Number: 2011SP002082

PATIENT
  Age: 32 Year
  Sex: Female
  Weight: 53.5 kg

DRUGS (2)
  1. IMPLANON [Suspect]
     Indication: CONTRACEPTION
     Dosage: 68 MG; SBDE
     Route: 059
     Dates: start: 20070101
  2. IMPLANON [Suspect]
     Indication: CONTRACEPTION
     Dosage: 68 MG; SBDE
     Route: 059
     Dates: start: 20040401

REACTIONS (2)
  - INCORRECT DRUG ADMINISTRATION DURATION [None]
  - IMPLANT SITE NERVE INJURY [None]
